FAERS Safety Report 8229446-0 (Version None)
Quarter: 2012Q1

REPORT INFORMATION
  Report Type: 
  Country: None (occurrence: None)
  Receive Date: 20120322
  Receipt Date: 20120319
  Transmission Date: 20120608
  Serious: Yes (Life-Threatening, Hospitalization)
  Sender: FDA-Public Use
  Company Number: CA-BRISTOL-MYERS SQUIBB COMPANY-16273518

PATIENT
  Age: 59 Year
  Sex: Male

DRUGS (9)
  1. ATIVAN [Concomitant]
     Dates: start: 20111018
  2. UREMOL [Concomitant]
     Dates: start: 20111031, end: 20111219
  3. MAGNESIUM [Concomitant]
     Dates: start: 20111115
  4. PROCHLORPERAZINE [Concomitant]
     Dates: start: 20110921
  5. VINORELBINE [Suspect]
     Indication: NON-SMALL CELL LUNG CANCER
     Dosage: INTERRUPTED ON 30NOV11 LAST DOSE:30NOV11 4 COURSES
     Route: 042
     Dates: start: 20110914, end: 20111205
  6. GLAXAL BASE [Concomitant]
     Dates: start: 20111004
  7. UREMOL [Concomitant]
     Dates: start: 20111031
  8. ERBITUX [Suspect]
     Indication: NON-SMALL CELL LUNG CANCER
     Dosage: 14SEP-14SEP11,400MG/M2 05OCT-30NOV11,250MG/M2 LAST DOSE:30NOV11 DELAY 5-19DEC11
     Route: 042
     Dates: start: 20110914
  9. CISPLATIN [Suspect]
     Indication: NON-SMALL CELL LUNG CANCER
     Dosage: INTERRUPTED ON 30NOV11 LAST DOSE:30NOV11 4 COURSES 80MG
     Route: 042
     Dates: start: 20110914, end: 20111205

REACTIONS (2)
  - INFECTIOUS PERITONITIS [None]
  - DIVERTICULAR PERFORATION [None]
